FAERS Safety Report 6159720-3 (Version None)
Quarter: 2009Q2

REPORT INFORMATION
  Report Type: 
  Country: None (occurrence: None)
  Receive Date: 20090420
  Receipt Date: 20090409
  Transmission Date: 20091009
  Serious: Yes (Death)
  Sender: FDA-Public Use
  Company Number: DE-BAXTER-2009BH005399

PATIENT
  Age: 71 Year
  Sex: Male
  Weight: 75 kg

DRUGS (7)
  1. GAMMAGARD LIQUID [Suspect]
     Indication: CHRONIC LYMPHOCYTIC LEUKAEMIA
     Route: 042
     Dates: start: 20080714, end: 20090402
  2. GAMMAGARD LIQUID [Suspect]
     Route: 042
     Dates: start: 20080714, end: 20080714
  3. GAMMAGARD LIQUID [Suspect]
     Route: 042
     Dates: start: 20080908, end: 20080908
  4. GAMMAGARD LIQUID [Suspect]
     Route: 042
     Dates: start: 20081006, end: 20081006
  5. GAMMAGARD LIQUID [Suspect]
     Route: 042
     Dates: start: 20081106, end: 20081106
  6. GAMMAGARD LIQUID [Suspect]
     Route: 042
     Dates: start: 20081204, end: 20081204
  7. CORTICOSTEROIDS [Concomitant]

REACTIONS (3)
  - BRONCHIAL CARCINOMA [None]
  - DISEASE PROGRESSION [None]
  - PULMONARY EMBOLISM [None]
